FAERS Safety Report 4314431-1 (Version None)
Quarter: 2004Q1

REPORT INFORMATION
  Report Type: 
  Country: None (occurrence: None)
  Receive Date: 20040308
  Receipt Date: 20021225
  Transmission Date: 20041129
  Serious: Yes (Life-Threatening, Hospitalization)
  Sender: FDA-Public Use
  Company Number: 2003IC000002

PATIENT
  Age: 57 Year
  Sex: Male

DRUGS (10)
  1. 5-FLUOROURACIL (FLOUROURACIL) [Suspect]
     Indication: CARCINOMA
     Dosage: 750 MG; UNKNOWN; INTRAVENOUS
     Route: 042
     Dates: start: 20020717, end: 20020731
  2. ISOVORIN [Suspect]
     Indication: CARCINOMA
     Dosage: 375 MG; UNKNOWN; INTRAVENOUS
     Route: 042
     Dates: start: 20020717, end: 20020731
  3. BERIZYM [Concomitant]
  4. PANCREATIN [Concomitant]
  5. ALFAROL [Concomitant]
  6. NABOAL SR [Concomitant]
  7. VOLTAREN [Concomitant]
  8. ULCERLMIN [Concomitant]
  9. GASMOTIN [Concomitant]
  10. SELBEX [Concomitant]

REACTIONS (9)
  - ABDOMINAL PAIN UPPER [None]
  - DISSEMINATED INTRAVASCULAR COAGULATION [None]
  - HYPOALBUMINAEMIA [None]
  - INFECTION [None]
  - LEUKOPENIA [None]
  - MARKEDLY REDUCED DIETARY INTAKE [None]
  - METASTASES TO LYMPH NODES [None]
  - RENAL FAILURE ACUTE [None]
  - THROMBOCYTOPENIA [None]
